FAERS Safety Report 6927813-6 (Version None)
Quarter: 2010Q3

REPORT INFORMATION
  Report Type: 
  Country: None (occurrence: None)
  Receive Date: 20100817
  Receipt Date: 20100808
  Transmission Date: 20110219
  Serious: Yes (Death)
  Sender: FDA-Public Use
  Company Number: CN-PFIZER INC-2010099596

PATIENT
  Sex: Male

DRUGS (2)
  1. LIPITOR [Suspect]
     Dosage: 20 MG, UNK
     Route: 048
     Dates: start: 20100101
  2. ASPIRIN [Suspect]
     Dosage: ROUTINE DOSAGE
     Route: 048
     Dates: start: 20100101

REACTIONS (1)
  - CEREBRAL HAEMORRHAGE [None]
